FAERS Safety Report 4364420-6 (Version None)
Quarter: 2004Q2

REPORT INFORMATION
  Report Type: 
  Country: None (occurrence: None)
  Receive Date: 20040525
  Receipt Date: 20040518
  Transmission Date: 20050107
  Serious: Yes (Hospitalization)
  Sender: FDA-Public Use
  Company Number: BR-ROCHE-368146

PATIENT
  Age: 40 Year
  Sex: Female
  Weight: 52 kg

DRUGS (6)
  1. ROACUTAN [Suspect]
     Indication: ACNE
     Route: 048
  2. LIPITOR [Concomitant]
     Route: 048
  3. RIVOTRIL [Concomitant]
     Route: 048
  4. MICROVLAR [Concomitant]
     Indication: CONTRACEPTION
     Route: 048
  5. STILNOX [Concomitant]
     Route: 048
  6. BECLOMETHASONE DIPROPIONATE [Concomitant]
     Route: 048

REACTIONS (1)
  - CEREBRAL ISCHAEMIA [None]
